FAERS Safety Report 20229578 (Version 1)
Quarter: 2021Q4

REPORT INFORMATION
  Report Type: Spontaneous
  Country: MY (occurrence: MY)
  Receive Date: 20211225
  Receipt Date: 20211225
  Transmission Date: 20220303
  Serious: Yes (Other)
  Sender: FDA-Public Use
  Company Number: MY-JNJFOC-20210952920

PATIENT
  Age: 46 Year
  Sex: Female
  Weight: 66 kg

DRUGS (14)
  1. SIMPONI [Suspect]
     Active Substance: GOLIMUMAB
     Indication: Psoriasis
     Route: 042
     Dates: start: 201909
  2. SIMPONI [Suspect]
     Active Substance: GOLIMUMAB
     Indication: Psoriatic arthropathy
  3. METHOTREXATE [Concomitant]
     Active Substance: METHOTREXATE
     Indication: Psoriasis
     Route: 065
     Dates: start: 2012
  4. METHOTREXATE [Concomitant]
     Active Substance: METHOTREXATE
     Indication: Psoriatic arthropathy
  5. PREDNISOLONE [Concomitant]
     Active Substance: PREDNISOLONE
     Dosage: ON AND OFF
     Route: 065
  6. LEFLUNOMIDE [Concomitant]
     Active Substance: LEFLUNOMIDE
     Route: 065
  7. SULFASALAZINE [Concomitant]
     Active Substance: SULFASALAZINE
     Route: 065
  8. CYCLOSPORINE [Concomitant]
     Active Substance: CYCLOSPORINE
     Route: 065
  9. BETAMETHASONE DIPROPIONATE;SALICYLIC ACID [Concomitant]
     Indication: Psoriasis
     Dosage: LA BETAMETHASONE DIPROPIONATE 0.064% + SALICYCLIC ACID 2% LOTION PSORIASIS
     Route: 065
  10. BETAMETHASONE DIPROPIONATE;SALICYLIC ACID [Concomitant]
     Indication: Psoriasis
  11. SEBITAR [COAL TAR;SALICYLIC ACID] [Concomitant]
     Indication: Psoriasis
     Dosage: LA COAL TAR 1%, SALICYCLIC ACID 2%
     Route: 065
  12. SEBITAR [COAL TAR;SALICYLIC ACID] [Concomitant]
     Indication: Psoriasis
  13. BRIMONIDINE TARTRATE [Concomitant]
     Active Substance: BRIMONIDINE TARTRATE
     Indication: Glaucoma
     Route: 065
  14. TIMOLOL MALEATE [Concomitant]
     Active Substance: TIMOLOL MALEATE
     Indication: Glaucoma
     Dosage: OPHTHALMIC GEL
     Route: 065

REACTIONS (3)
  - Uveitis [Unknown]
  - Psoriatic arthropathy [Unknown]
  - Treatment failure [Unknown]
